FAERS Safety Report 6872607-3 (Version None)
Quarter: 2010Q3

REPORT INFORMATION
  Report Type: 
  Country: None (occurrence: None)
  Receive Date: 20100723
  Receipt Date: 20081010
  Transmission Date: 20110219
  Serious: No
  Sender: FDA-Public Use
  Company Number: US-PFIZER INC-2008085555

PATIENT
  Sex: Female

DRUGS (3)
  1. CHANTIX [Suspect]
     Indication: SMOKING CESSATION THERAPY
     Dates: start: 20080925
  2. SYNTHROID [Concomitant]
     Indication: THYROID DISORDER
  3. LEXAPRO [Concomitant]

REACTIONS (2)
  - NAUSEA [None]
  - VOMITING [None]
